FAERS Safety Report 6596005-5 (Version None)
Quarter: 2010Q1

REPORT INFORMATION
  Report Type: 
  Country: None (occurrence: None)
  Receive Date: 20100223
  Receipt Date: 20100211
  Transmission Date: 20100710
  Serious: Yes (Other)
  Sender: FDA-Public Use
  Company Number: PHHY2010US08369

PATIENT
  Sex: Female

DRUGS (1)
  1. CLOZARIL [Suspect]
     Indication: PSYCHOTIC DISORDER
     Dosage: 275 MG, BID
     Route: 048
     Dates: start: 20090101

REACTIONS (8)
  - ANTIPSYCHOTIC DRUG LEVEL INCREASED [None]
  - CONFUSIONAL STATE [None]
  - DYSARTHRIA [None]
  - EXTRAPYRAMIDAL DISORDER [None]
  - MUSCLE RIGIDITY [None]
  - NEUTROPHIL COUNT INCREASED [None]
  - PSYCHOTIC DISORDER [None]
  - SOMNOLENCE [None]
